FAERS Safety Report 5570414-5 (Version None)
Quarter: 2007Q4

REPORT INFORMATION
  Report Type: 
  Country: None (occurrence: None)
  Receive Date: 20071221
  Receipt Date: 20071218
  Transmission Date: 20080405
  Serious: Yes (Other)
  Sender: FDA-Public Use
  Company Number: PHNU2007DE04229

PATIENT
  Age: 80 Year
  Sex: Female

DRUGS (1)
  1. DIOVAN HCT [Suspect]
     Dates: start: 20050101

REACTIONS (2)
  - CATARACT [None]
  - CATARACT OPERATION [None]
